FAERS Safety Report 7132619-1 (Version None)
Quarter: 2010Q4

REPORT INFORMATION
  Report Type: 
  Country: None (occurrence: None)
  Receive Date: 20101130
  Receipt Date: 20101130
  Transmission Date: 20110411
  Serious: Yes (Death)
  Sender: FDA-Public Use
  Company Number: None

PATIENT
  Age: 67 Year
  Sex: Female

DRUGS (28)
  1. ACETAMINOPHEN [Suspect]
  2. ACTIVASE [Concomitant]
  3. AMIODARONE [Concomitant]
  4. ARTIFICIAL TEARS [Concomitant]
  5. ATACURIUM [Concomitant]
  6. AZITHROMYCIN [Concomitant]
  7. CA-GLUCONTE [Concomitant]
  8. CHLORHEXIDINE [Concomitant]
  9. DEXTROSE [Concomitant]
  10. ESMOLOL HCL [Concomitant]
  11. FENTANYL [Concomitant]
  12. FLUCONAZOLE [Concomitant]
  13. GABAPENTIN [Concomitant]
  14. HEPARIN [Concomitant]
  15. HYDROCORTISONE [Concomitant]
  16. INSULIN LISPRO [Concomitant]
  17. REGULAR INSULIN [Concomitant]
  18. MAGNESIUM SULFATE [Concomitant]
  19. MICONAZOLE [Concomitant]
  20. MIDAZOLAM HCL [Concomitant]
  21. MORPHINE [Concomitant]
  22. OBEPRAZOLE [Concomitant]
  23. PIPERACILLIN AND TAZOBACTAM [Concomitant]
  24. POTASSIUM CHLORIDE [Concomitant]
  25. SIMVASTATIN [Concomitant]
  26. SODIUM BICARBONATE [Concomitant]
  27. VANCOMYCIN [Concomitant]
  28. VASOPRESSIN [Concomitant]

REACTIONS (2)
  - INTERNATIONAL NORMALISED RATIO INCREASED [None]
  - PLATELET COUNT DECREASED [None]
